FAERS Safety Report 19752476 (Version 1)
Quarter: 2021Q3

REPORT INFORMATION
  Report Type: Spontaneous
  Country: US (occurrence: US)
  Receive Date: 20210826
  Receipt Date: 20210826
  Transmission Date: 20211014
  Serious: Yes (Other)
  Sender: FDA-Public Use
  Company Number: US-GLAXOSMITHKLINE-US2021GSK180524

PATIENT
  Sex: Male

DRUGS (12)
  1. RANITIDINE. [Suspect]
     Active Substance: RANITIDINE
     Dosage: UNK
  2. ZANTAC [Suspect]
     Active Substance: RANITIDINE HYDROCHLORIDE
     Dosage: 300 MG, QD
     Route: 065
     Dates: start: 201401, end: 201911
  3. RANITIDINE. [Suspect]
     Active Substance: RANITIDINE
     Dosage: 300 MG, QD
     Route: 065
     Dates: start: 201401, end: 201911
  4. RANITIDINE. [Suspect]
     Active Substance: RANITIDINE
     Indication: COLITIS ULCERATIVE
     Dosage: 300 MG, QD
     Route: 065
     Dates: start: 201401, end: 201911
  5. ZANTAC [Suspect]
     Active Substance: RANITIDINE HYDROCHLORIDE
     Indication: COLITIS ULCERATIVE
     Dosage: 150 MG BOTH
     Route: 065
     Dates: start: 201401, end: 201911
  6. RANITIDINE. [Suspect]
     Active Substance: RANITIDINE
     Dosage: 300 MG, QD
     Route: 065
     Dates: start: 201401, end: 201911
  7. RANITIDINE CAPSULE [Suspect]
     Active Substance: RANITIDINE
     Indication: COLITIS ULCERATIVE
     Dosage: 300 MG BOTH
     Route: 065
     Dates: start: 201401, end: 201911
  8. ZANTAC [Suspect]
     Active Substance: RANITIDINE HYDROCHLORIDE
     Indication: COLITIS ULCERATIVE
     Dosage: 150 MG BOTH
     Route: 065
     Dates: start: 201401, end: 201911
  9. ZANTAC [Suspect]
     Active Substance: RANITIDINE HYDROCHLORIDE
     Dosage: 300 MG, QD
     Route: 065
     Dates: start: 201401, end: 201911
  10. RANITIDINE CAPSULE [Suspect]
     Active Substance: RANITIDINE
     Dosage: 150 MG BOTH
     Route: 065
     Dates: start: 201401, end: 201911
  11. RANITIDINE. [Suspect]
     Active Substance: RANITIDINE
     Indication: COLITIS ULCERATIVE
     Dosage: 150 MG BOTH
     Route: 065
     Dates: start: 201401, end: 201911
  12. RANITIDINE. [Suspect]
     Active Substance: RANITIDINE
     Indication: COLITIS ULCERATIVE
     Dosage: 150 MG BOTH
     Route: 065
     Dates: start: 201401, end: 201911

REACTIONS (1)
  - Oesophageal carcinoma [Unknown]
